FAERS Safety Report 4932318-8 (Version None)
Quarter: 2006Q1

REPORT INFORMATION
  Report Type: 
  Country: None (occurrence: None)
  Receive Date: 20060301
  Receipt Date: 20060220
  Transmission Date: 20060701
  Serious: Yes (Other)
  Sender: FDA-Public Use
  Company Number: 13546

PATIENT
  Age: 17 Year
  Sex: Male

DRUGS (8)
  1. METHOTREXATE [Suspect]
     Indication: ACUTE LEUKAEMIA
     Dosage: 12.5 MG OTH, IT
     Route: 037
  2. DAUNORUBICIN HCL [Concomitant]
  3. VINCRISTINE [Concomitant]
  4. PREDNISOLONE [Concomitant]
  5. ASPARAGINASE [Concomitant]
  6. CYCLOPHOSPHAMIDE [Concomitant]
  7. CYTOSINE ARABINOSIDE [Concomitant]
  8. MERCAPTOPURINE [Concomitant]

REACTIONS (10)
  - APHASIA [None]
  - BLOOD BRAIN BARRIER DEFECT [None]
  - DYSARTHRIA [None]
  - DYSPHAGIA [None]
  - GENERAL PHYSICAL HEALTH DETERIORATION [None]
  - INFLAMMATION [None]
  - LEUKOENCEPHALOPATHY [None]
  - LYMPHOCYTOSIS [None]
  - NEUROPATHY [None]
  - PSEUDOBULBAR PALSY [None]
